FAERS Safety Report 9248960 (Version 1)
Quarter: 2013Q1

REPORT INFORMATION
  Report Type: Spontaneous
  Country: US (occurrence: None)
  Receive Date: 20130305
  Receipt Date: 20130305
  Transmission Date: 20140127
  Serious: Yes (Hospitalization, Other)
  Sender: FDA-Public Use
  Company Number: 163-21880-12053104

PATIENT
  Age: 71 Year
  Sex: Female

DRUGS (19)
  1. REVLIMID [Suspect]
     Indication: PLASMA CELL MYELOMA
     Dosage: 15 MG, EVERY OTHER DAY X 21
     Route: 048
     Dates: start: 20111118
  2. AMBIEN [Concomitant]
  3. ASPIRIN (ACETYLSALICYLIC ACID) (81 MILLIGRAM, TABLETS) [Concomitant]
  4. CALCUIM (CALCIUM) (500 MILLIGRAM, TABLETS) [Concomitant]
  5. COREG (CARVEDILOL) (12.5 MILLIGRAM, TABLETS) [Concomitant]
  6. FISH OIL (FISH OIL) (CAPSULES) [Concomitant]
  7. FLOMAX (TAMSULOSIN HYDROCHLORIDE) (0.4 MILLIGRAM, CAPSULES) [Concomitant]
  8. FLONASE (FLUTICASONE PROPIONATE) (0.05 PERCENT, SPRAY NOT INHALATION) [Concomitant]
  9. FOLIC ACID (FOLIC ACID) (1 MILLIGRAM, TABLETS) [Concomitant]
  10. LANTUS (INSULIN GLARGINE) (INJECTION) [Concomitant]
  11. LASIX (FUROSEMIDE) (20 MILLIGRAM, TABLETS) [Concomitant]
  12. METAMUCIL (METAMUCIL ^PROCTER + GAMBLE^) (POWDER) [Concomitant]
  13. MULTIVITAMIN (MULTIVITAMINS) (CAPSULES) [Concomitant]
  14. NEURONTIN (GABAPENTIN) (100 MILLIGRAM, CAPSULES) [Concomitant]
  15. PRAVACHOL (PRAVASTATIN SODIUM) (10 MILLIGRAM, TABLETS) [Concomitant]
  16. PREVACID (LANSOPRAZOLE) (15 MILLIGRAM, TABLETS) [Concomitant]
  17. SYNTHROID (LEVOTHYROXINE SODIUM) (25 MILLIGRAM, TABLETS) [Concomitant]
  18. VITAMIN D3 (COLECALCIFEROL) (TABLETS) [Concomitant]
  19. ZYRTEC (CETIRIZINE HYDROCHLORIDE) (5 MILLIGRAM, TABLETS) [Concomitant]

REACTIONS (2)
  - Thrombosis [None]
  - Cardiac failure congestive [None]
